FAERS Safety Report 6478076-X (Version None)
Quarter: 2009Q4

REPORT INFORMATION
  Report Type: 
  Country: None (occurrence: None)
  Receive Date: 20091207
  Receipt Date: 20091202
  Transmission Date: 20100525
  Serious: Yes (Hospitalization)
  Sender: FDA-Public Use
  Company Number: FR-MERCK-0912FRA00004

PATIENT
  Age: 84 Year
  Sex: Female

DRUGS (15)
  1. COZAAR [Suspect]
     Route: 048
     Dates: start: 20090906, end: 20090910
  2. POTASSIUM CHLORIDE AND SODIUM BICARBONATE AND SODIUM CHLORIDE AND SODI [Suspect]
     Route: 048
     Dates: start: 20090908, end: 20090909
  3. SULFAMETHOXAZOLE AND TRIMETHOPRIM [Suspect]
     Route: 048
     Dates: start: 20090905, end: 20090905
  4. SULFAMETHOXAZOLE AND TRIMETHOPRIM [Suspect]
     Route: 048
     Dates: start: 20090906, end: 20090906
  5. SULFAMETHOXAZOLE AND TRIMETHOPRIM [Suspect]
     Route: 048
     Dates: start: 20090908, end: 20090908
  6. ACEBUTOLOL HYDROCHLORIDE [Suspect]
     Route: 048
     Dates: start: 20090801, end: 20090910
  7. ASPIRIN LYSINE [Concomitant]
     Route: 065
     Dates: end: 20090906
  8. FOLIC ACID [Suspect]
     Route: 048
     Dates: start: 20090801, end: 20090910
  9. AMLODIPINE BESYLATE [Suspect]
     Route: 048
     Dates: start: 20090905, end: 20090910
  10. AMLODIPINE BESYLATE [Suspect]
     Route: 048
     Dates: start: 20090916
  11. RILMENIDINE PHOSPHATE [Suspect]
     Route: 048
     Dates: start: 20090801, end: 20090910
  12. RILMENIDINE PHOSPHATE [Suspect]
     Route: 048
     Dates: start: 20090914, end: 20090927
  13. HEPARIN CALCIUM [Suspect]
     Route: 058
     Dates: start: 20090830, end: 20090909
  14. INSULIN DETEMIR [Concomitant]
     Route: 051
     Dates: start: 20090906, end: 20090906
  15. BUMETANIDE [Concomitant]
     Route: 065
     Dates: end: 20090910

REACTIONS (1)
  - ACUTE GENERALISED EXANTHEMATOUS PUSTULOSIS [None]
